FAERS Safety Report 8488266-2 (Version None)
Quarter: 2012Q3

REPORT INFORMATION
  Report Type: 
  Country: None (occurrence: None)
  Receive Date: 20120705
  Receipt Date: 20120705
  Transmission Date: 20120928
  Serious: Yes (Hospitalization)
  Sender: FDA-Public Use
  Company Number: US-PFIZER INC-2010US-36275

PATIENT
  Sex: Female
  Weight: 68 kg

DRUGS (18)
  1. CATAPRES [Concomitant]
     Dosage: UNK
  2. BENICAR [Concomitant]
     Dosage: UNK
  3. NEXIUM [Concomitant]
     Dosage: UNK
  4. INSULIN [Concomitant]
     Dosage: UNK
  5. LYRICA [Concomitant]
     Dosage: UNK
  6. CALAN [Suspect]
     Indication: BLOOD PRESSURE
     Dosage: 120 MG, BID
     Route: 048
     Dates: start: 20070101
  7. ALISKIREN [Concomitant]
     Dosage: UNK
  8. POTASSIUM [Concomitant]
     Dosage: UNK
  9. PREDNISONE [Concomitant]
     Dosage: UNK
  10. AMARYL [Concomitant]
     Dosage: UNK
  11. MULTI-VITAMINS [Concomitant]
     Dosage: UNK
  12. FISH OIL [Concomitant]
     Dosage: UNK
  13. IBANDRONATE SODIUM [Concomitant]
     Dosage: UNK
  14. LEVOXYL [Concomitant]
     Dosage: UNK
  15. ASCORBIC ACID [Concomitant]
     Dosage: UNK
  16. ACETYLSALICYLIC ACID [Concomitant]
     Dosage: UNK
  17. ZETIA [Concomitant]
     Dosage: UNK
  18. METHOTREXATE SODIUM [Concomitant]
     Dosage: UNK

REACTIONS (5)
  - DIARRHOEA [None]
  - ABDOMINAL DISCOMFORT [None]
  - SLEEP DISORDER [None]
  - WEIGHT INCREASED [None]
  - HERNIA [None]
